FAERS Safety Report 16918532 (Version 3)
Quarter: 2019Q4

REPORT INFORMATION
  Report Type: Spontaneous
  Country: US (occurrence: US)
  Receive Date: 20191015
  Receipt Date: 20191218
  Transmission Date: 20200122
  Serious: Yes (Other)
  Sender: FDA-Public Use
  Company Number: US-PFIZER INC-2019226520

PATIENT
  Age: 63 Year
  Sex: Male

DRUGS (2)
  1. LYRICA [Suspect]
     Active Substance: PREGABALIN
     Indication: SPINAL OSTEOARTHRITIS
     Dosage: 150 MG, AS NEEDED (THREE TIMES DAILY)
     Route: 048
  2. LYRICA [Suspect]
     Active Substance: PREGABALIN
     Indication: RADICULOPATHY
     Dosage: 150 MG, AS NEEDED (THREE TIMES DAILY AS NEEDED )
     Route: 048
     Dates: start: 20191211

REACTIONS (4)
  - Movement disorder [Unknown]
  - Pelvic fracture [Unknown]
  - Thinking abnormal [Unknown]
  - Accident [Unknown]
